FAERS Safety Report 9167957 (Version 1)
Quarter: 2013Q1

REPORT INFORMATION
  Report Type: Spontaneous
  Country: US (occurrence: US)
  Receive Date: 20130318
  Receipt Date: 20130318
  Transmission Date: 20140127
  Serious: No
  Sender: FDA-Public Use
  Company Number: US-009507513-1303USA007795

PATIENT
  Sex: Male

DRUGS (16)
  1. ZOCOR [Suspect]
     Route: 048
  2. PROVENTIL [Concomitant]
     Dosage: 180 MICROGRAM, Q6H
     Route: 055
  3. VENTOLIN (ALBUTEROL) [Concomitant]
     Dosage: 180 MICROGRAM, Q6H
     Route: 055
  4. VENTOLIN HFA [Concomitant]
     Indication: DYSPNOEA
     Dosage: INHALE 2-3 PUFFS BY INHALATION
     Route: 055
  5. ZYLOPRIM [Concomitant]
     Dosage: 300 MG, QD
     Route: 048
  6. AMOXIL [Concomitant]
     Dosage: 875 MG, QD FOR 7 DAYS
     Route: 048
  7. ASPIRIN [Concomitant]
     Dosage: 81 MG, QD
     Route: 048
  8. DIGITEK [Concomitant]
     Dosage: 125 MICROGRAM, QD
     Route: 048
  9. TIKOSYN [Concomitant]
     Dosage: 125 MICROGRAM, BID
     Route: 048
  10. ERGOCALCIFEROL [Concomitant]
     Dosage: 800 UNITS, QD
     Route: 048
  11. ADVAIR [Concomitant]
     Dosage: 1 DF,BID
     Route: 055
  12. FUROSEMIDE [Concomitant]
     Dosage: 60 MG, QM
     Route: 048
  13. NORCO [Concomitant]
     Indication: PAIN
     Dosage: 1-2 TABLETS EVERY 6 HOURS AS NEEDED
     Route: 048
  14. DUONEB [Concomitant]
     Dosage: UP TO 4 TIMES DAILY AS NEEDED
     Route: 045
  15. NASONEX [Concomitant]
     Dosage: 2 SPRAYS EACH NOSTRIL ONCE DAILY AS NEEDED
     Route: 045
  16. PRILOSEC [Concomitant]
     Dosage: 20 MG, QD
     Route: 048

REACTIONS (1)
  - Drug hypersensitivity [Unknown]
